FAERS Safety Report 10255911 (Version 1)
Quarter: 2014Q2

REPORT INFORMATION
  Report Type: Spontaneous
  Country: US (occurrence: US)
  Receive Date: 20140624
  Receipt Date: 20140624
  Transmission Date: 20141212
  Serious: Yes (Other)
  Sender: FDA-Public Use
  Company Number: US-GLAXOSMITHKLINE-A1077322A

PATIENT
  Age: 62 Year
  Sex: Female

DRUGS (10)
  1. ADVAIR [Suspect]
     Indication: CHRONIC OBSTRUCTIVE PULMONARY DISEASE
     Dosage: 1PUFF TWICE PER DAY
     Route: 055
     Dates: start: 2011
  2. MVI [Concomitant]
  3. B12 COMPLEX [Concomitant]
  4. MAGNESIUM [Concomitant]
  5. CALCIUM + VITAMIN D [Concomitant]
  6. LISINOPRIL [Concomitant]
  7. WATER PILL [Concomitant]
  8. PROBIOTIC [Concomitant]
  9. SINUS ALLERGY PILL [Concomitant]
  10. ANTACID [Concomitant]

REACTIONS (5)
  - Pneumonia [Recovered/Resolved]
  - Anaemia [Recovered/Resolved]
  - Nasopharyngitis [Recovered/Resolved]
  - Cough [Recovered/Resolved]
  - Malaise [Recovered/Resolved]
